FAERS Safety Report 26001704 (Version 1)
Quarter: 2025Q4

REPORT INFORMATION
  Report Type: Spontaneous
  Country: US (occurrence: US)
  Receive Date: 20251105
  Receipt Date: 20251105
  Transmission Date: 20260117
  Serious: No
  Sender: GALPHARM INTERNATIONAL
  Company Number: US-PERRIGO-24US009329

PATIENT
  Age: 69 Year
  Sex: Female
  Weight: 55.782 kg

DRUGS (3)
  1. FAMOTIDINE [Suspect]
     Active Substance: FAMOTIDINE
     Indication: Gastrooesophageal reflux disease
     Dosage: 20 MG, SINGLE
     Route: 048
     Dates: start: 20240915, end: 20240915
  2. FAMOTIDINE [Suspect]
     Active Substance: FAMOTIDINE
     Dosage: 20 MG, SINGLE
     Route: 048
     Dates: start: 20241001, end: 20241001
  3. ASPIRIN [Concomitant]
     Active Substance: ASPIRIN
     Indication: Heart valve replacement
     Dosage: 81 MG
     Route: 048
     Dates: start: 2020

REACTIONS (1)
  - Vomiting [Recovered/Resolved]

NARRATIVE: CASE EVENT DATE: 20240915
